FAERS Safety Report 6137411-2 (Version None)
Quarter: 2009Q1

REPORT INFORMATION
  Report Type: 
  Country: None (occurrence: None)
  Receive Date: 20090326
  Receipt Date: 20090313
  Transmission Date: 20090719
  Serious: Yes (Death, Life-Threatening)
  Sender: FDA-Public Use
  Company Number: MC200900064

PATIENT
  Age: 76 Year
  Sex: Male
  Weight: 81.6 kg

DRUGS (4)
  1. ANGIOMAX [Suspect]
     Indication: PERCUTANEOUS CORONARY INTERVENTION
     Dosage: 0.75 MG/KG, BOLUS, INTRAVENOUS : 1.75 MG/KG, HR, INTRAVENOUS
     Route: 042
     Dates: start: 20090217, end: 20090217
  2. ANGIOMAX [Suspect]
     Indication: STENT PLACEMENT
     Dosage: 0.75 MG/KG, BOLUS, INTRAVENOUS : 1.75 MG/KG, HR, INTRAVENOUS
     Route: 042
     Dates: start: 20090217, end: 20090217
  3. ANGIOMAX [Suspect]
     Indication: PERCUTANEOUS CORONARY INTERVENTION
     Dosage: 0.75 MG/KG, BOLUS, INTRAVENOUS : 1.75 MG/KG, HR, INTRAVENOUS
     Route: 042
     Dates: start: 20090217, end: 20090217
  4. ANGIOMAX [Suspect]
     Indication: STENT PLACEMENT
     Dosage: 0.75 MG/KG, BOLUS, INTRAVENOUS : 1.75 MG/KG, HR, INTRAVENOUS
     Route: 042
     Dates: start: 20090217, end: 20090217

REACTIONS (3)
  - BLOOD PRESSURE INCREASED [None]
  - CEREBRAL HAEMORRHAGE [None]
  - HAEMORRHAGIC STROKE [None]
